FAERS Safety Report 6519418-6 (Version None)
Quarter: 2009Q4

REPORT INFORMATION
  Report Type: 
  Country: None (occurrence: None)
  Receive Date: 20091228
  Receipt Date: 20091214
  Transmission Date: 20100525
  Serious: Yes (Congenital Anomaly)
  Sender: FDA-Public Use
  Company Number: DE-MERCK-0912DEU00054B1

PATIENT
  Sex: Male

DRUGS (2)
  1. PROPECIA [Suspect]
     Indication: DRUG EXPOSURE DURING PREGNANCY
     Route: 065
  2. PROPECIA [Suspect]
     Route: 065

REACTIONS (2)
  - CRYPTORCHISM [None]
  - DRUG EXPOSURE DURING PREGNANCY [None]
